FAERS Safety Report 5849066-2 (Version None)
Quarter: 2008Q3

REPORT INFORMATION
  Report Type: 
  Country: None (occurrence: None)
  Receive Date: 20080819
  Receipt Date: 20080811
  Transmission Date: 20090109
  Serious: Yes (Other)
  Sender: FDA-Public Use
  Company Number: PHHY2008AU17874

PATIENT
  Age: 81 Year
  Sex: Female

DRUGS (1)
  1. EXELON [Suspect]
     Dosage: 10 CM2 PATCH, UNK
     Route: 062

REACTIONS (3)
  - FREEZING PHENOMENON [None]
  - MUSCLE RIGIDITY [None]
  - THERAPY REGIMEN CHANGED [None]
